FAERS Safety Report 4766176-1 (Version None)
Quarter: 2005Q3

REPORT INFORMATION
  Report Type: 
  Country: None (occurrence: None)
  Receive Date: 20050912
  Receipt Date: 20050401
  Transmission Date: 20060218
  Serious: Yes (Other)
  Sender: FDA-Public Use
  Company Number: US-MERCK-0504USA00489

PATIENT
  Age: 51 Year
  Sex: Female
  Weight: 114 kg

DRUGS (25)
  1. VIOXX [Suspect]
     Indication: ARTHRITIS
     Route: 048
     Dates: start: 20030301, end: 20041013
  2. LIPITOR [Concomitant]
     Indication: BLOOD CHOLESTEROL INCREASED
     Route: 048
     Dates: start: 20030501, end: 20040801
  3. LIPITOR [Concomitant]
     Route: 048
     Dates: start: 20030501, end: 20040801
  4. PREMPRO [Concomitant]
     Indication: HORMONE LEVEL ABNORMAL
     Route: 065
     Dates: start: 19900101, end: 20030101
  5. PREMPRO [Concomitant]
     Route: 065
     Dates: start: 19900101, end: 20030101
  6. PREVACID [Concomitant]
     Indication: DYSPEPSIA
     Route: 048
  7. PREVACID [Concomitant]
     Route: 048
  8. QUININE SULFATE [Concomitant]
     Indication: MUSCLE SPASMS
     Route: 048
  9. QUININE SULFATE [Concomitant]
     Route: 048
  10. ZYRTEC [Concomitant]
     Indication: HYPERSENSITIVITY
     Route: 048
  11. ZYRTEC [Concomitant]
     Route: 048
  12. INSULIN [Concomitant]
     Indication: DIABETES MELLITUS
     Route: 058
  13. INSULIN [Concomitant]
     Route: 058
  14. TRAMADOL MSD [Concomitant]
     Indication: PAIN
     Route: 065
     Dates: start: 19980101, end: 20040101
  15. TRAMADOL MSD [Concomitant]
     Route: 065
     Dates: start: 19980101, end: 20040101
  16. TIZANIDINE HYDROCHLORIDE [Concomitant]
     Indication: MUSCLE SPASTICITY
     Route: 048
  17. TIZANIDINE HYDROCHLORIDE [Concomitant]
     Route: 048
  18. LISINOPRIL [Concomitant]
     Indication: HYPERTENSION
     Route: 048
  19. LISINOPRIL [Concomitant]
     Route: 048
  20. LANTUS [Concomitant]
     Indication: DIABETES MELLITUS
     Route: 058
  21. LANTUS [Concomitant]
     Route: 058
  22. MORPHINE SULFATE [Concomitant]
     Indication: ARTHRITIS
     Route: 065
  23. MORPHINE SULFATE [Concomitant]
     Route: 065
  24. MORPHINE SULFATE [Concomitant]
     Indication: FIBROMYALGIA
     Route: 065
  25. MORPHINE SULFATE [Concomitant]
     Route: 065

REACTIONS (3)
  - CEREBROVASCULAR ACCIDENT [None]
  - LOSS OF CONSCIOUSNESS [None]
  - POLYTRAUMATISM [None]
